FAERS Safety Report 8961579 (Version 6)
Quarter: 2016Q3

REPORT INFORMATION
  Report Type: Spontaneous
  Country: US (occurrence: US)
  Receive Date: 20121213
  Receipt Date: 20160810
  Transmission Date: 20161109
  Serious: Yes (Hospitalization, Disabling, Other)
  Sender: FDA-Public Use
  Company Number: US-BAYER-2012-128046

PATIENT
  Age: 21 Year
  Sex: Female
  Weight: 87 kg

DRUGS (48)
  1. REGLAN [Concomitant]
     Active Substance: METOCLOPRAMIDE HYDROCHLORIDE
     Indication: IMPAIRED GASTRIC EMPTYING
  2. MIRALAX [Concomitant]
     Active Substance: POLYETHYLENE GLYCOL 3350
  3. LACTOBACILLUS ACIDOPHILUS\LACTOBACILLUS BULGARICUS [Concomitant]
     Active Substance: LACTOBACILLUS ACIDOPHILUS\LACTOBACILLUS DELBRUECKII SUBSP. BULGARICUS
  4. YAZ [Suspect]
     Active Substance: DROSPIRENONE\ETHINYL ESTRADIOL
     Indication: SKIN DISORDER
     Dosage: UNK
     Route: 048
     Dates: start: 20080715, end: 20100128
  5. DILANTIN [Concomitant]
     Active Substance: PHENYTOIN
     Indication: SEIZURE
     Dosage: UNK
     Dates: start: 2010
  6. MIDAZOLAM [Concomitant]
     Active Substance: MIDAZOLAM\MIDAZOLAM HYDROCHLORIDE
  7. ZOFRAN [Concomitant]
     Active Substance: ONDANSETRON HYDROCHLORIDE
  8. MAGNESIUM SULFATE. [Concomitant]
     Active Substance: MAGNESIUM SULFATE
  9. YAZ [Suspect]
     Active Substance: DROSPIRENONE\ETHINYL ESTRADIOL
     Indication: ACNE
  10. LIDOCAINE. [Concomitant]
     Active Substance: LIDOCAINE
  11. SINGULAIR [Concomitant]
     Active Substance: MONTELUKAST SODIUM
     Dosage: UNK
     Dates: start: 199812
  12. MEDICIDIN-D [Concomitant]
     Dosage: 1 PACK TID
  13. CHLORPHENIRAMINE MALEATE AND PSEUDOEPHEDRINE HYDROCHLORIDE [Concomitant]
     Active Substance: CHLORPHENIRAMINE MALEATE\PSEUDOEPHEDRINE HYDROCHLORIDE
  14. COMPAZINE [Concomitant]
     Active Substance: PROCHLORPERAZINE MALEATE
  15. LOPRESSOR [Concomitant]
     Active Substance: METOPROLOL TARTRATE
  16. OMEPRAZOLE. [Concomitant]
     Active Substance: OMEPRAZOLE
  17. LORTAB [Concomitant]
     Active Substance: ACETAMINOPHEN\HYDROCODONE BITARTRATE
  18. PAVULON [Concomitant]
     Active Substance: PANCURONIUM BROMIDE
  19. IBUPROFEN. [Concomitant]
     Active Substance: IBUPROFEN
     Indication: INFLAMMATION
  20. NYSTATIN. [Concomitant]
     Active Substance: NYSTATIN
  21. FENTANYL. [Concomitant]
     Active Substance: FENTANYL
  22. ATIVAN [Concomitant]
     Active Substance: LORAZEPAM
  23. TYLENOL [CHLORPHENAM MAL,DEXTROMET HBR,PARACET,PSEUDOEPH HCL] [Concomitant]
     Active Substance: ACETAMINOPHEN\CHLORPHENIRAMINE MALEATE\DEXTROMETHORPHAN HYDROBROMIDE\PSEUDOEPHEDRINE HYDROCHLORIDE
  24. PHENYTOIN. [Concomitant]
     Active Substance: PHENYTOIN
  25. ASCORBIC ACID. [Concomitant]
     Active Substance: ASCORBIC ACID
  26. ALTEPLASE [Concomitant]
     Active Substance: ALTEPLASE
  27. ZOSYN [Concomitant]
     Active Substance: PIPERACILLIN SODIUM\TAZOBACTAM SODIUM
  28. ATROPINE. [Concomitant]
     Active Substance: ATROPINE
  29. LEVAQUIN [Concomitant]
     Active Substance: LEVOFLOXACIN
  30. PERCOCET [Concomitant]
     Active Substance: ACETAMINOPHEN\OXYCODONE HYDROCHLORIDE
  31. FOSPHENYTOIN [Concomitant]
     Active Substance: FOSPHENYTOIN\FOSPHENYTOIN SODIUM
  32. GLUTAMINE [Concomitant]
     Active Substance: GLUTAMINE
  33. KEPPRA [Concomitant]
     Active Substance: LEVETIRACETAM
  34. FLEXON [Concomitant]
     Active Substance: ACETAMINOPHEN\IBUPROFEN
  35. DUAC [Concomitant]
     Active Substance: BENZOYL PEROXIDE\CLINDAMYCIN PHOSPHATE
     Indication: ACNE
     Dosage: UNK
     Dates: start: 200901
  36. IBUPROFEN. [Concomitant]
     Active Substance: IBUPROFEN
     Indication: PAIN
     Dosage: UNK UNK, PRN
  37. AMOXICILLIN. [Concomitant]
     Active Substance: AMOXICILLIN
     Dosage: 500 MG, TID
     Route: 048
  38. ERYTHROMYCIN. [Concomitant]
     Active Substance: ERYTHROMYCIN
  39. LACOSAMIDE. [Concomitant]
     Active Substance: LACOSAMIDE
     Indication: DEEP VEIN THROMBOSIS
  40. MINOCYCLINE [Concomitant]
     Active Substance: MINOCYCLINE\MINOCYCLINE HYDROCHLORIDE
  41. LASIX [Concomitant]
     Active Substance: FUROSEMIDE
  42. EPINEPHRINE. [Concomitant]
     Active Substance: EPINEPHRINE
  43. PHENERGAN [Concomitant]
     Active Substance: PROMETHAZINE HYDROCHLORIDE
     Dosage: UNK
     Dates: start: 200810
  44. DESMOPRESSIN [Concomitant]
     Active Substance: DESMOPRESSIN
  45. TOBRAMYCIN. [Concomitant]
     Active Substance: TOBRAMYCIN
  46. GENTAMICIN. [Concomitant]
     Active Substance: GENTAMICIN
  47. MEPERIDINE [Concomitant]
     Active Substance: MEPERIDINE
  48. FAMOTIDINE. [Concomitant]
     Active Substance: FAMOTIDINE

REACTIONS (29)
  - Product use issue [None]
  - Cerebral thrombosis [None]
  - Pain [Recovered/Resolved]
  - Pulse absent [None]
  - Brain injury [None]
  - Psychological trauma [None]
  - Apallic syndrome [None]
  - Anxiety [None]
  - Brain hypoxia [None]
  - Thrombophlebitis superficial [Recovered/Resolved]
  - Bedridden [None]
  - Atrial thrombosis [None]
  - Respiratory arrest [None]
  - Cerebral ischaemia [None]
  - Cognitive disorder [None]
  - Unresponsive to stimuli [None]
  - Pulmonary embolism [Recovered/Resolved]
  - Pupillary reflex impaired [None]
  - Depression [None]
  - Deep vein thrombosis [Recovered/Resolved]
  - Deep vein thrombosis [Recovered/Resolved]
  - Injury [Recovered/Resolved]
  - Jugular vein thrombosis [Recovered/Resolved]
  - Emotional distress [None]
  - Mobility decreased [None]
  - Cardiac arrest [None]
  - Apnoeic attack [None]
  - Cerebrovascular accident [Not Recovered/Not Resolved]
  - Abasia [None]

NARRATIVE: CASE EVENT DATE: 20100128
